FAERS Safety Report 9728678 (Version 1)
Quarter: 2013Q4

REPORT INFORMATION
  Report Type: Spontaneous
  Country: US (occurrence: US)
  Receive Date: 20131204
  Receipt Date: 20131204
  Transmission Date: 20140711
  Serious: No
  Sender: FDA-Public Use
  Company Number: US-PFIZER INC-2013341729

PATIENT
  Age: 68 Year
  Sex: Female
  Weight: 67.12 kg

DRUGS (6)
  1. BOSULIF [Suspect]
     Indication: CHRONIC MYELOID LEUKAEMIA
     Dosage: 200 MG, 1X/DAY
     Dates: start: 20130617
  2. BOSULIF [Suspect]
     Dosage: 300 MG, 1X/DAY
     Dates: start: 2013
  3. BOSULIF [Suspect]
     Dosage: 200 MG, 1X/DAY
     Dates: start: 2013, end: 2013
  4. SPRYCEL [Suspect]
     Indication: CHRONIC MYELOID LEUKAEMIA
     Dosage: 100 MG, 1X/DAY
  5. SPRYCEL [Suspect]
     Dosage: 20 MG, 1X/DAY
     Dates: end: 201303
  6. POLYETHYLENE GLYCOL [Concomitant]
     Indication: CONSTIPATION
     Dosage: UNK, 1X/DAY

REACTIONS (10)
  - Disease progression [Unknown]
  - Chronic myeloid leukaemia [Unknown]
  - Alopecia [Unknown]
  - Hepatotoxicity [Unknown]
  - Hepatic enzyme increased [Unknown]
  - Platelet count decreased [Unknown]
  - Amylase increased [Unknown]
  - Blood bilirubin increased [Unknown]
  - Monocyte count increased [Unknown]
  - Weight increased [Unknown]
